FAERS Safety Report 8833266 (Version 2)
Quarter: 2012Q4

REPORT INFORMATION
  Report Type: 
  Country: MX (occurrence: MX)
  Receive Date: 20121010
  Receipt Date: 20121207
  Transmission Date: 20130627
  Serious: Yes (Other)
  Sender: FDA-Public Use
  Company Number: PHHY2012MX077992

PATIENT
  Age: 49 Year
  Sex: Female

DRUGS (4)
  1. EXFORGE HCT [Suspect]
     Indication: HYPERTENSION
     Dosage: 1 DF (320/10/25 mg), QD
     Route: 048
     Dates: start: 20120814
  2. GALVUS MET [Suspect]
     Indication: DIABETES MELLITUS
     Dosage: 1 tablet (500/50 mg), daily
     Route: 048
     Dates: start: 201209
  3. ASPIRIN PROTECT [Concomitant]
     Indication: ANGIOPATHY
  4. VYTORIN [Concomitant]
     Dosage: UNK UKN, UNK
     Dates: start: 201208

REACTIONS (5)
  - Blood pressure fluctuation [Recovered/Resolved]
  - Blood triglycerides increased [Recovered/Resolved]
  - Constipation [Recovered/Resolved]
  - Weight decreased [Not Recovered/Not Resolved]
  - Blood glucose decreased [Not Recovered/Not Resolved]
